FAERS Safety Report 10701195 (Version 3)
Quarter: 2015Q1

REPORT INFORMATION
  Report Type: Spontaneous
  Country: BE (occurrence: BE)
  Receive Date: 20150109
  Receipt Date: 20150210
  Transmission Date: 20150721
  Serious: Yes (Life-Threatening, Hospitalization)
  Sender: FDA-Public Use
  Company Number: PHHY2015BE001530

PATIENT
  Age: 82 Year
  Sex: Male

DRUGS (2)
  1. SOTALOL. [Concomitant]
     Active Substance: SOTALOL
     Indication: CARDIAC DISORDER
     Dosage: 0.5 DF, BID
     Route: 065
  2. ULTIBRO BREEZHALER [Suspect]
     Active Substance: GLYCOPYRRONIUM\INDACATEROL
     Indication: CHRONIC OBSTRUCTIVE PULMONARY DISEASE
     Dosage: QD (ONCE DAILY)
     Route: 065
     Dates: start: 20141218

REACTIONS (4)
  - Hypotension [Unknown]
  - Ventricular tachycardia [Unknown]
  - Palpitations [Unknown]
  - Shock [Unknown]

NARRATIVE: CASE EVENT DATE: 20150106
